FAERS Safety Report 9913486 (Version 1)
Quarter: 2014Q1

REPORT INFORMATION
  Report Type: Spontaneous
  Country: US (occurrence: None)
  Receive Date: 20140219
  Receipt Date: 20140219
  Transmission Date: 20141002
  Serious: Yes (Death)
  Sender: FDA-Public Use
  Company Number: None

PATIENT
  Sex: Female
  Weight: 113.4 kg

DRUGS (1)
  1. ZANAMIVIR [Suspect]
     Dosage: 2/12/14 1400PM IV 600MG X ONE DOSE
     Route: 042
     Dates: start: 20140212

REACTIONS (3)
  - Acute respiratory failure [None]
  - Pneumonia influenzal [None]
  - Acute respiratory distress syndrome [None]
